FAERS Safety Report 13463314 (Version 1)
Quarter: 2017Q2

REPORT INFORMATION
  Report Type: Spontaneous
  Country: NL (occurrence: NL)
  Receive Date: 20170420
  Receipt Date: 20170420
  Transmission Date: 20170830
  Serious: Yes (Other)
  Sender: FDA-Public Use
  Company Number: NL-CORDEN PHARMA LATINA S.P.A.-NL-2017COR000087

PATIENT
  Sex: Female

DRUGS (1)
  1. CARBOPLATIN. [Suspect]
     Active Substance: CARBOPLATIN
     Indication: CONGENITAL RETINOBLASTOMA
     Dosage: 6 COURSES (CUMULATIVE DOSE:1800 MG/M2)
     Route: 042

REACTIONS (1)
  - Mixed deafness [Unknown]
